FAERS Safety Report 8090737-8 (Version None)
Quarter: 2012Q1

REPORT INFORMATION
  Report Type: 
  Country: None (occurrence: None)
  Receive Date: 20120124
  Receipt Date: 20120117
  Transmission Date: 20120608
  Serious: Yes (Disabling)
  Sender: FDA-Public Use
  Company Number: 2012SP002904

PATIENT
  Age: 62 Year
  Sex: Female

DRUGS (6)
  1. CALCIUM [Concomitant]
  2. CELESTONE [Suspect]
     Indication: ARTHRALGIA
     Dosage: 5.7 MG; IA
     Route: 014
     Dates: start: 20111028, end: 20111104
  3. CELESTONE [Suspect]
     Indication: MUSCULOSKELETAL DISORDER
     Dosage: 5.7 MG; IA
     Route: 014
     Dates: start: 20111028, end: 20111104
  4. VITAMIN D [Concomitant]
  5. MOVIPREP [Concomitant]
  6. PRILOSEC [Concomitant]

REACTIONS (5)
  - FLUID RETENTION [None]
  - CHEST PAIN [None]
  - CHEST DISCOMFORT [None]
  - HYPERNATRAEMIA [None]
  - BLOOD POTASSIUM DECREASED [None]
